FAERS Safety Report 6523564-0 (Version None)
Quarter: 2009Q4

REPORT INFORMATION
  Report Type: 
  Country: None (occurrence: None)
  Receive Date: 20091231
  Receipt Date: 20091221
  Transmission Date: 20100525
  Serious: Yes (Disabling)
  Sender: FDA-Public Use
  Company Number: PHHY2009IT49556

PATIENT
  Sex: Male

DRUGS (1)
  1. ZOMETA [Suspect]
     Dosage: 4 MG, UNK
     Route: 042
     Dates: start: 20070101, end: 20090513

REACTIONS (4)
  - ABSCESS JAW [None]
  - FISTULA [None]
  - JAW DISORDER [None]
  - PURULENT DISCHARGE [None]
